FAERS Safety Report 13452942 (Version 3)
Quarter: 2017Q3

REPORT INFORMATION
  Report Type: Report from Study
  Country: US (occurrence: US)
  Receive Date: 20170418
  Receipt Date: 20170728
  Transmission Date: 20171127
  Serious: Yes (Hospitalization)
  Sender: FDA-Public Use
  Company Number: US-PFIZER INC-2017162071

PATIENT
  Age: 45 Year
  Sex: Female
  Weight: 85.27 kg

DRUGS (5)
  1. INCB018424 [Suspect]
     Active Substance: RUXOLITINIB
     Indication: ACUTE GRAFT VERSUS HOST DISEASE IN SKIN
     Dosage: 5 MG, 2X/DAY
     Route: 048
     Dates: start: 20170301, end: 20170406
  2. METHYLPREDNISOLONE SODIUM SUCCINATE. [Suspect]
     Active Substance: METHYLPREDNISOLONE SODIUM SUCCINATE
     Indication: ACUTE GRAFT VERSUS HOST DISEASE IN SKIN
     Dosage: 2MG/KG 2X/DAY (BID)
     Route: 042
     Dates: start: 20170301, end: 20170313
  3. PREDNISONE. [Suspect]
     Active Substance: PREDNISONE
     Indication: ACUTE GRAFT VERSUS HOST DISEASE IN SKIN
     Dosage: 40 MG, 2X/DAY
     Route: 048
     Dates: start: 20170301, end: 20170420
  4. INCB018424 [Suspect]
     Active Substance: RUXOLITINIB
     Dosage: 5 MG,1X/DAY
     Route: 048
     Dates: start: 20170407, end: 20170420
  5. METHYLPREDNISOLONE SODIUM SUCCINATE. [Suspect]
     Active Substance: METHYLPREDNISOLONE SODIUM SUCCINATE
     Dosage: 50 MG, 2X/DAY
     Route: 042
     Dates: start: 20170314, end: 20170420

REACTIONS (2)
  - Back pain [Recovered/Resolved with Sequelae]
  - Hepatic infection [Recovering/Resolving]

NARRATIVE: CASE EVENT DATE: 20170310
